FAERS Safety Report 4932953-7 (Version None)
Quarter: 2006Q1

REPORT INFORMATION
  Report Type: 
  Country: None (occurrence: None)
  Receive Date: 20060301
  Receipt Date: 20060217
  Transmission Date: 20060701
  Serious: Yes (Death)
  Sender: FDA-Public Use
  Company Number: HQWYE346502APR04

PATIENT
  Sex: Female

DRUGS (6)
  1. PREMPRO [Suspect]
     Indication: HORMONE REPLACEMENT THERAPY
     Dosage: ORAL
     Route: 048
  2. CYCRIN [Suspect]
  3. ESTROGENIC SUBSTANCE [Suspect]
  4. MEDROXYPROGESTERONE [Suspect]
  5. PREMARIN [Suspect]
  6. PROVERA [Suspect]

REACTIONS (3)
  - BREAST CANCER METASTATIC [None]
  - METASTASES TO BONE [None]
  - METASTASES TO SPINE [None]
